FAERS Safety Report 5147273-8 (Version None)
Quarter: 2006Q4

REPORT INFORMATION
  Report Type: 
  Country: None (occurrence: None)
  Receive Date: 20061103
  Receipt Date: 20061025
  Transmission Date: 20070319
  Serious: Yes (Disabling, Other)
  Sender: FDA-Public Use
  Company Number: 001-0981-M0005930

PATIENT
  Sex: Female

DRUGS (4)
  1. LIPITOR [Suspect]
     Dosage: 10 MG, UNKNOWN
     Dates: start: 20000801, end: 20000101
  2. PREMARIN [Concomitant]
  3. PROVERA [Concomitant]
  4. TRIAMTERENE (TRIAMTERENE) [Concomitant]

REACTIONS (3)
  - LACRIMATION INCREASED [None]
  - PAIN IN EXTREMITY [None]
  - VEIN DISORDER [None]
